FAERS Safety Report 22527336 (Version 1)
Quarter: 2023Q2

REPORT INFORMATION
  Report Type: Spontaneous
  Country: KR (occurrence: KR)
  Receive Date: 20230606
  Receipt Date: 20230606
  Transmission Date: 20230721
  Serious: Yes (Hospitalization)
  Sender: FDA-Public Use
  Company Number: KR-ORGANON-O2306KOR000167

PATIENT
  Sex: Male

DRUGS (10)
  1. COZAAR [Suspect]
     Active Substance: LOSARTAN POTASSIUM
     Dosage: UNK, QD (FILM COATED TABLET )
     Route: 048
     Dates: start: 20200318, end: 20200320
  2. SODIUM CHLORIDE [Concomitant]
     Active Substance: SODIUM CHLORIDE
     Dosage: UNK (ROUTE REPORTED AS VEIN)
     Dates: start: 20200203, end: 20200203
  3. SODIUM CHLORIDE [Concomitant]
     Active Substance: SODIUM CHLORIDE
     Dosage: UNK, ONCE A DAY (ROUTE REPORTED AS VEIN)
     Dates: start: 20200203, end: 20200203
  4. HYDROCHLOROTHIAZIDE [Concomitant]
     Active Substance: HYDROCHLOROTHIAZIDE
     Dosage: UNK, ONCE A DAY  (UNCOATED TABLET)
     Route: 048
     Dates: start: 20200318, end: 20200320
  5. AMLODIPINE BESYLATE [Concomitant]
     Active Substance: AMLODIPINE BESYLATE
     Dosage: UNK (UNCOATED TABLET)
     Route: 048
     Dates: start: 20200318, end: 20200320
  6. FUSIDATE SODIUM [Concomitant]
     Active Substance: FUSIDATE SODIUM
     Dosage: UNK (SKIN OINTMENT) (ROUTE REPORTED AS: EXTERNAL USE)
     Dates: start: 20200319, end: 20200319
  7. MIDAZOLAM [Concomitant]
     Active Substance: MIDAZOLAM
     Dosage: UNK, (ROUTE: VEN)
     Dates: start: 20200318, end: 20200319
  8. DEXAMETHASONE SODIUM PHOSPHATE [Concomitant]
     Active Substance: DEXAMETHASONE SODIUM PHOSPHATE
     Dosage: UNK, (ROUTE: VEIN)
     Dates: start: 20200319, end: 20200319
  9. KETOROLAC TROMETHAMINE [Concomitant]
     Active Substance: KETOROLAC TROMETHAMINE
     Dosage: UNK, (ROUTE: VEIN)
     Dates: start: 20200319
  10. ESOMEPRAZOLE SODIUM [Concomitant]
     Active Substance: ESOMEPRAZOLE SODIUM
     Dosage: UNK (POWDER INJECTION FOR SOLUTION) (ROUTE: VEIN)
     Dates: start: 20200319, end: 20200320

REACTIONS (2)
  - Surgery [Unknown]
  - Inappropriate schedule of product administration [Unknown]

NARRATIVE: CASE EVENT DATE: 20200319
